FAERS Safety Report 12850535 (Version 2)
Quarter: 2016Q4

REPORT INFORMATION
  Report Type: Spontaneous
  Country: US (occurrence: US)
  Receive Date: 20161014
  Receipt Date: 20161101
  Transmission Date: 20170207
  Serious: Yes (Death, Hospitalization)
  Sender: FDA-Public Use
  Company Number: US-UNITED THERAPEUTICS-UNT-2016-015679

PATIENT
  Sex: Female

DRUGS (3)
  1. REMODULIN [Suspect]
     Active Substance: TREPROSTINIL
     Dosage: UNK
     Route: 041
     Dates: start: 20161003
  2. REMODULIN [Suspect]
     Active Substance: TREPROSTINIL
     Indication: PULMONARY ARTERIAL HYPERTENSION
     Dosage: 0.0277 ?G/KG, CONTINUING
     Route: 041
     Dates: start: 20160708
  3. REMODULIN [Suspect]
     Active Substance: TREPROSTINIL
     Dosage: 0.222 ?G/KG, CONTINUING
     Route: 041
     Dates: start: 20161007

REACTIONS (4)
  - Back pain [Unknown]
  - Painful respiration [Unknown]
  - Systemic lupus erythematosus [Unknown]
  - Death [Fatal]

NARRATIVE: CASE EVENT DATE: 20161004
